FAERS Safety Report 8057097 (Version 2)
Quarter: 2012Q4

REPORT INFORMATION
  Report Type: 
  Country: US (occurrence: US)
  Receive Date: 20110727
  Receipt Date: 20120829
  Transmission Date: 20130627
  Serious: Yes (Hospitalization)
  Sender: FDA-Public Use
  Company Number: US-GLAXOSMITHKLINE-A0923660A

PATIENT
  Age: 59 Year
  Sex: Male

DRUGS (1)
  1. AVANDIA [Suspect]
     Indication: DIABETES MELLITUS
     Dosage: 4MG Per day
     Route: 048
     Dates: start: 200106, end: 200712

REACTIONS (6)
  - Myocardial infarction [Recovering/Resolving]
  - Atrial fibrillation [Unknown]
  - Surgery [Unknown]
  - Cardiac disorder [Unknown]
  - Heart rate irregular [Unknown]
  - Atrial flutter [Unknown]
